FAERS Safety Report 12881975 (Version 2)
Quarter: 2017Q4

REPORT INFORMATION
  Report Type: Spontaneous
  Country: US (occurrence: US)
  Receive Date: 20161025
  Receipt Date: 20171127
  Transmission Date: 20180320
  Serious: Yes (Hospitalization, Other)
  Sender: FDA-Public Use
  Company Number: US-009507513-1010USA01165

PATIENT
  Sex: Female
  Weight: 73.03 kg

DRUGS (4)
  1. FOSAMAX [Suspect]
     Active Substance: ALENDRONATE SODIUM
     Indication: OSTEOPOROSIS
     Dosage: 10 MG, QD
     Route: 048
     Dates: start: 19981224
  2. FOSAMAX [Suspect]
     Active Substance: ALENDRONATE SODIUM
     Indication: OSTEOPOROSIS
     Dosage: 70 MG, UNK
     Route: 048
     Dates: start: 20031125, end: 20100801
  3. ONE-A-DAY ESSENTIAL VITAMINS [Concomitant]
     Indication: PRODUCT USED FOR UNKNOWN INDICATION
     Dosage: UNK UNK, QD
     Route: 065
     Dates: start: 2005
  4. ALENDRONATE SODIUM. [Suspect]
     Active Substance: ALENDRONATE SODIUM
     Indication: OSTEOPOROSIS
     Dosage: 70 MG, QW
     Route: 048
     Dates: start: 20080219, end: 201007

REACTIONS (35)
  - Atrophy [Unknown]
  - Nausea [Unknown]
  - Osteitis [Unknown]
  - Osteoarthritis [Unknown]
  - Cardiac failure congestive [Not Recovered/Not Resolved]
  - Fall [Unknown]
  - Fracture nonunion [Unknown]
  - Aortic arteriosclerosis [Unknown]
  - Rib fracture [Unknown]
  - Rib fracture [Unknown]
  - Oedema [Unknown]
  - Peripheral vascular disorder [Unknown]
  - Abdominal pain [Unknown]
  - Gastrointestinal disorder [Unknown]
  - Dizziness [Unknown]
  - Pain in jaw [Unknown]
  - Low turnover osteopathy [Unknown]
  - Impaired healing [Unknown]
  - Dyspnoea [Not Recovered/Not Resolved]
  - Knee arthroplasty [Unknown]
  - Bursitis [Unknown]
  - Muscular weakness [Unknown]
  - Left ventricular failure [Unknown]
  - Vomiting [Unknown]
  - Device dislocation [Unknown]
  - Hepatic cyst [Unknown]
  - Neoplasm [Unknown]
  - Arthrotomy [Unknown]
  - Device breakage [Unknown]
  - Fall [Unknown]
  - Arthralgia [Unknown]
  - Femur fracture [Unknown]
  - Head injury [Unknown]
  - Pain in extremity [Unknown]
  - Dyslipidaemia [Unknown]

NARRATIVE: CASE EVENT DATE: 19990511
